FAERS Safety Report 25861901 (Version 1)
Quarter: 2025Q3

REPORT INFORMATION
  Report Type: Other
  Country: GB (occurrence: GB)
  Receive Date: 20250930
  Receipt Date: 20250930
  Transmission Date: 20251021
  Serious: Yes (Other)
  Sender: ASPEN
  Company Number: GB-PFIZER INC-202500183536

PATIENT

DRUGS (3)
  1. DEXAMETHASONE [Suspect]
     Active Substance: DEXAMETHASONE
     Indication: Light chain disease
     Route: 065
     Dates: start: 202105, end: 202205
  2. CYCLOPHOSPHAMIDE [Suspect]
     Active Substance: CYCLOPHOSPHAMIDE
     Indication: Light chain disease
     Route: 065
     Dates: start: 202105, end: 202205
  3. POMALIDOMIDE [Suspect]
     Active Substance: POMALIDOMIDE
     Indication: Light chain disease
     Route: 065
     Dates: start: 202105, end: 202205

REACTIONS (3)
  - Off label use [Unknown]
  - Light chain disease [Unknown]
  - Malignant neoplasm progression [Unknown]
